FAERS Safety Report 6503133-9 (Version None)
Quarter: 2009Q4

REPORT INFORMATION
  Report Type: 
  Country: None (occurrence: None)
  Receive Date: 20091202
  Receipt Date: 20090922
  Transmission Date: 20100525
  Serious: Yes (Hospitalization, Other)
  Sender: FDA-Public Use
  Company Number: AUR-APU-2009-00748

PATIENT
  Sex: Male

DRUGS (1)
  1. ZOLPIDEM [Suspect]

REACTIONS (2)
  - AGGRESSION [None]
  - DRUG INEFFECTIVE [None]
